FAERS Safety Report 16813071 (Version 1)
Quarter: 2019Q3

REPORT INFORMATION
  Report Type: Other
  Country: US (occurrence: US)
  Receive Date: 20190916
  Receipt Date: 20190916
  Transmission Date: 20191005
  Serious: No
  Sender: FDA-Public Use
  Company Number: US-LEADIANT BIOSCIENCES INC-2019STPI000041

PATIENT
  Sex: Male

DRUGS (17)
  1. MATULANE [Suspect]
     Active Substance: PROCARBAZINE HYDROCHLORIDE
     Dosage: UNK
  2. TIZADINE [Concomitant]
     Active Substance: TIZANIDINE HYDROCHLORIDE
  3. PROCHLORPERAZINE HCL [Concomitant]
  4. LIPITOR [Concomitant]
     Active Substance: ATORVASTATIN CALCIUM
  5. VIAGRA [Concomitant]
     Active Substance: SILDENAFIL CITRATE
  6. DEXAMETHASONE. [Concomitant]
     Active Substance: DEXAMETHASONE
  7. ZOFRAN [Concomitant]
     Active Substance: ONDANSETRON HYDROCHLORIDE
  8. METFORMIN ARCANA [Concomitant]
  9. LOMUSTINE. [Concomitant]
     Active Substance: LOMUSTINE
  10. ZOLOFT [Concomitant]
     Active Substance: SERTRALINE HYDROCHLORIDE
  11. PROTONIX [OMEPRAZOLE] [Concomitant]
     Active Substance: OMEPRAZOLE
  12. LISINOPRIL. [Concomitant]
     Active Substance: LISINOPRIL
  13. VENTOLIN P.F. [Concomitant]
     Active Substance: ALBUTEROL SULFATE
  14. MATULANE [Suspect]
     Active Substance: PROCARBAZINE HYDROCHLORIDE
     Indication: GLIOMA
     Dosage: 150 MG PO QD ON DAYS 8 - 21 Q 2 WEEKS
     Dates: start: 20180912
  15. HCTZ [Concomitant]
     Active Substance: HYDROCHLOROTHIAZIDE
  16. KEPPRA [Concomitant]
     Active Substance: LEVETIRACETAM
  17. LACTULOSE. [Concomitant]
     Active Substance: LACTULOSE

REACTIONS (1)
  - Nausea [Recovered/Resolved]
